FAERS Safety Report 6071563-8 (Version None)
Quarter: 2009Q1

REPORT INFORMATION
  Report Type: 
  Country: None (occurrence: None)
  Receive Date: 20090210
  Receipt Date: 20090203
  Transmission Date: 20090719
  Serious: Yes (Other)
  Sender: FDA-Public Use
  Company Number: BR-JNJFOC-20090201010

PATIENT
  Age: 31 Year
  Sex: Male
  Weight: 85 kg

DRUGS (5)
  1. HALDOL [Suspect]
     Route: 065
  2. HALDOL [Suspect]
     Indication: PSYCHOTIC DISORDER
     Route: 065
  3. RIVOTRIL [Concomitant]
     Indication: PSYCHOTIC DISORDER
     Dosage: 1 AND HALF TABLET OF 2 MG A DAY
     Route: 065
  4. SERTRALINE HYDROCHLORIDE [Concomitant]
     Indication: DEPRESSION
     Dosage: HALF TABLET OF 50 MG/SINCE 4 YEARS AGO
     Route: 065
  5. EQUILID [Concomitant]
     Indication: PARANOIA
     Dosage: SINCE 2 YEARS AGO
     Route: 065

REACTIONS (4)
  - DRUG INEFFECTIVE [None]
  - INCORRECT DOSE ADMINISTERED [None]
  - TYMPANIC MEMBRANE PERFORATION [None]
  - WEIGHT INCREASED [None]
